FAERS Safety Report 4978161-5 (Version None)
Quarter: 2006Q2

REPORT INFORMATION
  Report Type: 
  Country: None (occurrence: None)
  Receive Date: 20060420
  Receipt Date: 20060412
  Transmission Date: 20061013
  Serious: Yes (Other)
  Sender: FDA-Public Use
  Company Number: US-ROCHE-444335

PATIENT
  Age: 65 Year
  Sex: Male

DRUGS (2)
  1. VALIUM [Suspect]
     Indication: ANXIETY
     Dosage: TAKEN ON AND OFF FOR ABOUT 10 YEARS.
     Route: 048
     Dates: start: 19960615
  2. BENICAR [Concomitant]
     Indication: HYPERTENSION

REACTIONS (1)
  - ASTHMA [None]
